FAERS Safety Report 8351287-4 (Version None)
Quarter: 2012Q2

REPORT INFORMATION
  Report Type: 
  Country: None (occurrence: None)
  Receive Date: 20120510
  Receipt Date: 20110531
  Transmission Date: 20120825
  Serious: No
  Sender: FDA-Public Use
  Company Number: US-TEVA-2011002735

PATIENT
  Sex: Female
  Weight: 113.5 kg

DRUGS (10)
  1. AMBIEN [Concomitant]
  2. NEXIUM [Concomitant]
  3. NUVIGIL [Suspect]
     Indication: SLEEP APNOEA SYNDROME
     Route: 048
  4. TOPAMAX [Concomitant]
  5. PREMARIN [Concomitant]
  6. PRAVASTATIN [Concomitant]
  7. CELEBREX [Concomitant]
  8. CELEXA [Concomitant]
  9. WELLBUTRIN [Concomitant]
  10. ESTRATEST H.S. [Concomitant]

REACTIONS (3)
  - PSYCHOMOTOR HYPERACTIVITY [None]
  - ANXIETY [None]
  - DRUG INEFFECTIVE [None]
